FAERS Safety Report 8173138-3 (Version None)
Quarter: 2012Q1

REPORT INFORMATION
  Report Type: 
  Country: None (occurrence: None)
  Receive Date: 20120229
  Receipt Date: 20110204
  Transmission Date: 20120608
  Serious: No
  Sender: FDA-Public Use
  Company Number: US-GLAXOSMITHKLINE-A0911987A

PATIENT

DRUGS (2)
  1. NAPROSYN [Suspect]
     Route: 065
  2. SUMATRIPTAN SUCCINATE [Suspect]
     Route: 065

REACTIONS (1)
  - DRUG INEFFECTIVE [None]
